FAERS Safety Report 16525062 (Version 5)
Quarter: 2020Q1

REPORT INFORMATION
  Report Type: Report from Study
  Country: NL (occurrence: NL)
  Receive Date: 20190703
  Receipt Date: 20200115
  Transmission Date: 20200409
  Serious: Yes (Hospitalization, Other)
  Sender: FDA-Public Use
  Company Number: NL-JNJFOC-20190629172

PATIENT
  Age: 14 Year
  Sex: Male
  Weight: 50.4 kg

DRUGS (10)
  1. STELARA [Suspect]
     Active Substance: USTEKINUMAB
     Indication: PSORIASIS
     Route: 058
     Dates: start: 20180531, end: 20190221
  2. DENOREX THERAPEUTIC [Concomitant]
     Active Substance: COAL TAR\MENTHOL
     Route: 065
     Dates: start: 20190221
  3. EMOVATE                            /00337102/ [Concomitant]
     Active Substance: CLOBETASOL PROPIONATE
     Route: 065
     Dates: start: 20190221
  4. XAMIOL                             /06356901/ [Concomitant]
     Dosage: 50/500 SPRAY
     Route: 065
     Dates: start: 2017
  5. CLOBEX [Concomitant]
     Active Substance: CLOBETASOL PROPIONATE
     Dates: start: 2016
  6. STELARA [Suspect]
     Active Substance: USTEKINUMAB
     Route: 058
     Dates: start: 20190221, end: 20190613
  7. DOVOBET [Concomitant]
     Active Substance: BETAMETHASONE\CALCIPOTRIENE
     Route: 065
     Dates: start: 201502
  8. STELARA [Suspect]
     Active Substance: USTEKINUMAB
     Route: 058
     Dates: start: 20190705
  9. FOLIC ACID W/METHOTREXATE [Concomitant]
     Route: 065
     Dates: start: 20190705
  10. HUMIRA [Concomitant]
     Active Substance: ADALIMUMAB
     Indication: PRODUCT USED FOR UNKNOWN INDICATION
     Route: 065
     Dates: start: 20191230

REACTIONS (2)
  - Appendicitis [Recovered/Resolved]
  - Testicular torsion [Recovered/Resolved]

NARRATIVE: CASE EVENT DATE: 201905
